FAERS Safety Report 6647018-6 (Version None)
Quarter: 2010Q1

REPORT INFORMATION
  Report Type: 
  Country: None (occurrence: None)
  Receive Date: 20100323
  Receipt Date: 20100114
  Transmission Date: 20100710
  Serious: No
  Sender: FDA-Public Use
  Company Number: A0839447A

PATIENT
  Age: 59 Year
  Sex: Female

DRUGS (1)
  1. LAMICTAL CD [Suspect]
     Route: 048
     Dates: start: 20081201, end: 20090101

REACTIONS (7)
  - EYE INJURY [None]
  - EYELID FUNCTION DISORDER [None]
  - HERPES ZOSTER [None]
  - NERVE INJURY [None]
  - PRURITUS [None]
  - RASH [None]
  - VISUAL IMPAIRMENT [None]
